FAERS Safety Report 11312753 (Version 1)
Quarter: 2015Q3

REPORT INFORMATION
  Report Type: Spontaneous
  Country: US (occurrence: US)
  Receive Date: 20150727
  Receipt Date: 20150727
  Transmission Date: 20151125
  Serious: No
  Sender: FDA-Public Use
  Company Number: US-ABBVIE-15P-163-1377604-00

PATIENT
  Age: 47 Year
  Sex: Female

DRUGS (5)
  1. TIROSINT [Suspect]
     Active Substance: LEVOTHYROXINE SODIUM
     Indication: HYPOTHYROIDISM
     Route: 048
     Dates: start: 20141220, end: 20150131
  2. SYNTHROID [Suspect]
     Active Substance: LEVOTHYROXINE SODIUM
     Indication: PRODUCT USED FOR UNKNOWN INDICATION
     Route: 065
     Dates: start: 1995, end: 2014
  3. TIROSINT [Suspect]
     Active Substance: LEVOTHYROXINE SODIUM
     Route: 048
     Dates: start: 20150228
  4. TIROSINT [Suspect]
     Active Substance: LEVOTHYROXINE SODIUM
     Route: 048
  5. TIROSINT [Suspect]
     Active Substance: LEVOTHYROXINE SODIUM
     Route: 048
     Dates: start: 20150131

REACTIONS (16)
  - Visual impairment [Unknown]
  - Dizziness [Unknown]
  - Unevaluable event [Unknown]
  - Eye irritation [Unknown]
  - Eye pruritus [Unknown]
  - Ocular discomfort [Unknown]
  - Haemarthrosis [Unknown]
  - Eye pain [Unknown]
  - Eye irritation [Unknown]
  - Peripheral swelling [Unknown]
  - Malaise [Unknown]
  - Headache [Unknown]
  - Nasal discomfort [Unknown]
  - Eye swelling [Unknown]
  - Photophobia [Unknown]
  - Erythema [Unknown]

NARRATIVE: CASE EVENT DATE: 2014
